FAERS Safety Report 18288642 (Version 1)
Quarter: 2020Q3

REPORT INFORMATION
  Report Type: Spontaneous
  Country: US (occurrence: US)
  Receive Date: 20200920
  Receipt Date: 20200920
  Transmission Date: 20201103
  Serious: Yes (Other)
  Sender: FDA-Public Use
  Company Number: None

PATIENT
  Age: 90 Year
  Sex: Male
  Weight: 83.25 kg

DRUGS (5)
  1. ASPIRIN. [Concomitant]
     Active Substance: ASPIRIN
  2. LIVALO [Suspect]
     Active Substance: PITAVASTATIN CALCIUM
     Indication: BALANCE DISORDER
     Dosage: ?          QUANTITY:90 TABLET(S);?
     Route: 048
     Dates: start: 20200520, end: 20200527
  3. PRESERVISION [Concomitant]
     Active Substance: MINERALS\VITAMINS
  4. LIVALO [Suspect]
     Active Substance: PITAVASTATIN CALCIUM
     Indication: VISION BLURRED
     Dosage: ?          QUANTITY:90 TABLET(S);?
     Route: 048
     Dates: start: 20200520, end: 20200527
  5. AMLODIPINE [Concomitant]
     Active Substance: AMLODIPINE BESYLATE

REACTIONS (4)
  - Ill-defined disorder [None]
  - Sleep deficit [None]
  - Muscle disorder [None]
  - Adverse drug reaction [None]

NARRATIVE: CASE EVENT DATE: 20200521
